FAERS Safety Report 15713757 (Version 5)
Quarter: 2020Q3

REPORT INFORMATION
  Report Type: Spontaneous
  Country: PT (occurrence: PT)
  Receive Date: 20181212
  Receipt Date: 20200102
  Transmission Date: 20201105
  Serious: Yes (Life-Threatening, Hospitalization, Other)
  Sender: FDA-Public Use
  Company Number: PT-SA-2018SA339456

PATIENT
  Age: 47 Year
  Sex: Female

DRUGS (6)
  1. ETORICOXIB. [Suspect]
     Active Substance: ETORICOXIB
     Indication: ARTHRALGIA
     Dosage: 2 MG, BID
  2. CEFTRIAXONE. [Suspect]
     Active Substance: CEFTRIAXONE
     Indication: EVIDENCE BASED TREATMENT
     Dosage: UNK
  3. DEFLAZACORT [Suspect]
     Active Substance: DEFLAZACORT
     Indication: RASH PRURITIC
     Dosage: UNK
  4. ETORICOXIB. [Suspect]
     Active Substance: ETORICOXIB
     Indication: PAIN IN EXTREMITY
  5. ACEMETACIN [Suspect]
     Active Substance: ACEMETACIN
     Indication: ARTHRALGIA
     Dosage: UNK
  6. XYZAL [Suspect]
     Active Substance: LEVOCETIRIZINE DIHYDROCHLORIDE
     Indication: RASH PRURITIC
     Dosage: UNK

REACTIONS (21)
  - Rash pruritic [Recovered/Resolved]
  - Pyrexia [Recovered/Resolved]
  - Poor peripheral circulation [Recovered/Resolved]
  - Epidermal necrosis [Recovered/Resolved]
  - Confusional state [Recovered/Resolved]
  - Hepatic function abnormal [Recovered/Resolved]
  - Blister [Recovered/Resolved]
  - Rash macular [Recovered/Resolved]
  - Toxic epidermal necrolysis [Recovered/Resolved]
  - Fatigue [Recovered/Resolved]
  - Face oedema [Recovered/Resolved]
  - Tachycardia [Recovered/Resolved]
  - Stasis dermatitis [Recovered/Resolved]
  - Hypotension [Recovered/Resolved]
  - Hypocapnia [Recovered/Resolved]
  - Hypoxia [Recovered/Resolved]
  - Papule [Recovered/Resolved]
  - Rash maculo-papular [Recovered/Resolved]
  - Blood bicarbonate decreased [Recovered/Resolved]
  - Renal impairment [Recovered/Resolved]
  - Cardiomyopathy [Recovered/Resolved]
